FAERS Safety Report 12388485 (Version 3)
Quarter: 2016Q4

REPORT INFORMATION
  Report Type: Spontaneous
  Country: JP (occurrence: JP)
  Receive Date: 20160520
  Receipt Date: 20161219
  Transmission Date: 20170207
  Serious: Yes (Other)
  Sender: FDA-Public Use
  Company Number: JP-SHIRE-JP201605944

PATIENT
  Age: 7 Decade
  Sex: Female

DRUGS (2)
  1. FOSRENOL [Suspect]
     Active Substance: LANTHANUM CARBONATE
     Indication: HYPERPHOSPHATAEMIA
     Dosage: UNK, UNKNOWN
     Route: 048
  2. FOSRENOL [Suspect]
     Active Substance: LANTHANUM CARBONATE
     Indication: PROPHYLAXIS

REACTIONS (4)
  - Vomiting [Unknown]
  - Gastritis erosive [Unknown]
  - Medication residue present [Unknown]
  - Nausea [Unknown]

NARRATIVE: CASE EVENT DATE: 2015
